FAERS Safety Report 6030922-X (Version None)
Quarter: 2009Q1

REPORT INFORMATION
  Report Type: 
  Country: None (occurrence: None)
  Receive Date: 20090106
  Receipt Date: 20081222
  Transmission Date: 20090719
  Serious: Yes (Hospitalization)
  Sender: FDA-Public Use
  Company Number: 2008S1022704

PATIENT
  Age: 14 Year
  Sex: Male

DRUGS (6)
  1. METHOTREXATE [Suspect]
     Indication: ACUTE LYMPHOCYTIC LEUKAEMIA
     Dosage: INTRATHECAL
  2. CYTARABINE [Suspect]
     Indication: ACUTE LYMPHOCYTIC LEUKAEMIA
     Dosage: INTRACTHECAL
     Route: 037
  3. CLOFARABINE [Suspect]
     Indication: ACUTE LEUKAEMIA
  4. FLUDARABINE [Suspect]
     Indication: BONE MARROW CONDITIONING REGIMEN
  5. MELPHALAN [Suspect]
     Indication: BONE MARROW CONDITIONING REGIMEN
  6. THIOTEPA [Suspect]
     Indication: BONE MARROW CONDITIONING REGIMEN

REACTIONS (6)
  - CARDIAC ARREST [None]
  - LABILE BLOOD PRESSURE [None]
  - MYELOPATHY [None]
  - NEUROPATHY PERIPHERAL [None]
  - PROGRESSIVE MULTIFOCAL LEUKOENCEPHALOPATHY [None]
  - SUDDEN DEATH [None]
